FAERS Safety Report 9070647 (Version 2)
Quarter: 2013Q2

REPORT INFORMATION
  Report Type: Spontaneous
  Country: FR (occurrence: FR)
  Receive Date: 20130206
  Receipt Date: 20130409
  Transmission Date: 20140414
  Serious: Yes (Death, Life-Threatening, Hospitalization)
  Sender: FDA-Public Use
  Company Number: FR-B.I. PHARMACEUTICALS,INC./RIDGEFIELD-2013-FF-00300FF

PATIENT
  Age: 62 Year
  Sex: Female
  Weight: 50 kg

DRUGS (3)
  1. PRADAXA [Suspect]
     Indication: ATRIAL FIBRILLATION
     Dosage: 150 MG
     Route: 048
     Dates: start: 201210
  2. PRADAXA [Suspect]
     Indication: MITRAL VALVE DISEASE
     Dosage: 220 MG
     Route: 048
     Dates: end: 20121211
  3. LEVOTHYROX [Concomitant]

REACTIONS (5)
  - Intestinal ischaemia [Fatal]
  - Peripheral ischaemia [Fatal]
  - Thrombosis [Recovered/Resolved]
  - Thrombosis [Unknown]
  - Coma scale abnormal [Unknown]
